FAERS Safety Report 9751933 (Version 10)
Quarter: 2014Q2

REPORT INFORMATION
  Report Type: Spontaneous
  Country: US (occurrence: US)
  Receive Date: 20131213
  Receipt Date: 20140528
  Transmission Date: 20141212
  Serious: Yes (Hospitalization, Disabling, Other)
  Sender: FDA-Public Use
  Company Number: US-AMGEN-USASP2013087228

PATIENT
  Age: 60 Year
  Sex: Male
  Weight: 85 kg

DRUGS (4)
  1. ENBREL [Suspect]
     Indication: PSORIATIC ARTHROPATHY
     Dosage: 50 MG, QWK
     Route: 065
     Dates: start: 20050203, end: 20130302
  2. HEPARIN [Suspect]
     Indication: PRODUCT USED FOR UNKNOWN INDICATION
     Dosage: 5000 UNIT/ML 1 ML INJ
     Route: 058
  3. METFORMIN [Concomitant]
     Dosage: UNK
  4. PLAVIX [Concomitant]
     Indication: CORONARY ARTERY DISEASE
     Dosage: 75 MG, QD
     Route: 048

REACTIONS (42)
  - Myelitis [Unknown]
  - Cervical myelopathy [Unknown]
  - Quadriplegia [Unknown]
  - Disability [Unknown]
  - Injury [Unknown]
  - Spinal cord disorder [Unknown]
  - Central nervous system lesion [Not Recovered/Not Resolved]
  - Presyncope [Unknown]
  - Optic nerve disorder [Unknown]
  - Neurotoxicity [Unknown]
  - Dehydration [Unknown]
  - Leukocytosis [Unknown]
  - Epidural haemorrhage [Unknown]
  - Pulmonary mass [Not Recovered/Not Resolved]
  - Fall [Unknown]
  - Musculoskeletal pain [Unknown]
  - Gouty arthritis [Unknown]
  - Visual impairment [Not Recovered/Not Resolved]
  - Precancerous mucosal lesion [Unknown]
  - Neurogenic bladder [Unknown]
  - Neurogenic bowel [Unknown]
  - Blood copper decreased [Unknown]
  - Muscle spasticity [Unknown]
  - Joint effusion [Unknown]
  - Psoriatic arthropathy [Unknown]
  - Demyelination [Unknown]
  - Pneumonia [Unknown]
  - Urinary tract infection [Unknown]
  - Intraspinal abscess [Unknown]
  - Transaminases increased [Unknown]
  - Multiple sclerosis [Unknown]
  - Convulsion [Unknown]
  - Feeling abnormal [Unknown]
  - Malaise [Unknown]
  - Headache [Unknown]
  - Vomiting [Unknown]
  - Cyst [Unknown]
  - Anxiety [Unknown]
  - Neuralgia [Unknown]
  - Bursitis [Unknown]
  - Cough [Recovered/Resolved]
  - Enterocolitis viral [Recovered/Resolved]
